FAERS Safety Report 9935594 (Version 2)
Quarter: 2014Q1

REPORT INFORMATION
  Report Type: Report from Study
  Country: US (occurrence: US)
  Receive Date: 20140228
  Receipt Date: 20140228
  Transmission Date: 20141002
  Serious: Yes (Hospitalization)
  Sender: FDA-Public Use
  Company Number: US-ABBVIE-09P-163-0596930-00

PATIENT
  Age: 64 Year
  Sex: Male
  Weight: 97.16 kg

DRUGS (10)
  1. HUMIRA [Suspect]
     Indication: PSORIASIS
     Route: 058
     Dates: start: 20090302, end: 20090501
  2. HUMIRA [Suspect]
     Route: 058
     Dates: start: 20090909
  3. METHOTREXATE [Concomitant]
     Indication: PSORIASIS
     Dates: start: 19950929, end: 20090501
  4. RAPTIVA [Concomitant]
     Indication: PSORIASIS
     Dates: start: 200311
  5. AMEVIVE [Concomitant]
     Indication: PSORIASIS
     Dates: start: 2000
  6. HYZAAR [Concomitant]
     Indication: HYPERTENSION
     Dates: start: 2005, end: 200905
  7. GLUCOPHAGE [Concomitant]
     Indication: DIABETES MELLITUS
     Dates: start: 2001
  8. ACTOS [Concomitant]
     Indication: DIABETES MELLITUS
     Dates: start: 2005
  9. AVANDIA [Concomitant]
     Indication: DIABETES MELLITUS
     Dates: start: 2006
  10. SIMVASTATIN [Concomitant]
     Indication: HYPERTENSION
     Dates: start: 2000

REACTIONS (1)
  - Presyncope [Recovered/Resolved]
